FAERS Safety Report 8935283 (Version 11)
Quarter: 2015Q4

REPORT INFORMATION
  Report Type: Spontaneous
  Country: CA (occurrence: CA)
  Receive Date: 20121129
  Receipt Date: 20151019
  Transmission Date: 20160305
  Serious: Yes (Other)
  Sender: FDA-Public Use
  Company Number: CA-GLAXOSMITHKLINE-A1002754A

PATIENT
  Age: 31 Year
  Sex: Female

DRUGS (7)
  1. METHOTREXATE [Concomitant]
     Active Substance: METHOTREXATE
     Indication: PRODUCT USED FOR UNKNOWN INDICATION
     Dosage: UNK
  2. BENLYSTA [Suspect]
     Active Substance: BELIMUMAB
     Indication: SYSTEMIC LUPUS ERYTHEMATOSUS
     Dosage: 800MG AT WEEK 0, 2,4 AND EVERY 4 WEEKS
     Route: 042
     Dates: start: 20121113
  3. BENLYSTA [Suspect]
     Active Substance: BELIMUMAB
     Dosage: 800 MG, UNK
     Dates: start: 20150727
  4. PREDNISONE. [Concomitant]
     Active Substance: PREDNISONE
     Indication: PRODUCT USED FOR UNKNOWN INDICATION
     Dosage: 4 MG, DIE
     Route: 048
  5. PLAQUENIL [Concomitant]
     Active Substance: HYDROXYCHLOROQUINE SULFATE
     Indication: PRODUCT USED FOR UNKNOWN INDICATION
     Dosage: 100 MG, DIE
     Route: 048
  6. METHOTREXATE [Concomitant]
     Active Substance: METHOTREXATE
     Dosage: UNK
  7. FLUOXETINE HYDROCHLORIDE (TRIZAC) [Concomitant]
     Indication: PRODUCT USED FOR UNKNOWN INDICATION
     Dosage: UNK

REACTIONS (25)
  - Systemic lupus erythematosus [Unknown]
  - Cellulitis [Unknown]
  - Dyspepsia [Recovering/Resolving]
  - Swelling face [Unknown]
  - Pericardial effusion [Unknown]
  - Pyrexia [Recovering/Resolving]
  - Weight decreased [Unknown]
  - Sinusitis [Not Recovered/Not Resolved]
  - Aphonia [Unknown]
  - Fibromyalgia [Unknown]
  - Swelling [Unknown]
  - Pneumonia [Recovering/Resolving]
  - Sinus tachycardia [Unknown]
  - Drug intolerance [Unknown]
  - Malaise [Unknown]
  - Fatigue [Not Recovered/Not Resolved]
  - Insomnia [Not Recovered/Not Resolved]
  - Back pain [Unknown]
  - Movement disorder [Unknown]
  - Influenza like illness [Unknown]
  - Chest pain [Unknown]
  - Pain [Not Recovered/Not Resolved]
  - Gastroenteritis [Unknown]
  - Mouth ulceration [Unknown]
  - Arthralgia [Recovering/Resolving]

NARRATIVE: CASE EVENT DATE: 20121113
